FAERS Safety Report 11464363 (Version 2)
Quarter: 2015Q3

REPORT INFORMATION
  Report Type: Spontaneous
  Country: US (occurrence: US)
  Receive Date: 20150831
  Receipt Date: 20150903
  Transmission Date: 20151125
  Serious: No
  Sender: FDA-Public Use
  Company Number: US-ELI_LILLY_AND_COMPANY-US201103008955

PATIENT
  Sex: Female

DRUGS (5)
  1. XANAX                                   /USA/ [Concomitant]
  2. LORTAB [Concomitant]
     Active Substance: ACETAMINOPHEN\HYDROCODONE BITARTRATE
  3. CYMBALTA [Suspect]
     Active Substance: DULOXETINE HYDROCHLORIDE
     Indication: DEPRESSION
     Dosage: 60 MG, QD
     Dates: start: 2006
  4. CYMBALTA [Suspect]
     Active Substance: DULOXETINE HYDROCHLORIDE
     Dosage: 60 MG, QOD
  5. CELEXA [Concomitant]
     Active Substance: CITALOPRAM HYDROBROMIDE

REACTIONS (14)
  - Increased appetite [Unknown]
  - Menstrual disorder [Unknown]
  - Irritability [Unknown]
  - Depression [Unknown]
  - Abnormal dreams [Unknown]
  - Feeling abnormal [Unknown]
  - Frustration [Unknown]
  - Logorrhoea [Unknown]
  - Anxiety [Unknown]
  - Drug withdrawal syndrome [Unknown]
  - Weight increased [Unknown]
  - Paraesthesia [Recovered/Resolved]
  - Poor quality sleep [Unknown]
  - Hypersensitivity [Unknown]
